FAERS Safety Report 6241193-3 (Version None)
Quarter: 2009Q2

REPORT INFORMATION
  Report Type: 
  Country: None (occurrence: None)
  Receive Date: 20090623
  Receipt Date: 20090612
  Transmission Date: 20091009
  Serious: Yes (Other)
  Sender: FDA-Public Use
  Company Number: JP-BRISTOL-MYERS SQUIBB COMPANY-14635452

PATIENT
  Age: 43 Year
  Sex: Male

DRUGS (37)
  1. SPRYCEL [Suspect]
     Indication: ACUTE LYMPHOCYTIC LEUKAEMIA
     Dosage: INTERRUPTED 13MAY2009
     Route: 048
     Dates: start: 20090512, end: 20090515
  2. ENDOXAN [Suspect]
     Route: 041
     Dates: start: 20090512, end: 20090514
  3. ONCOVIN [Suspect]
     Dosage: GIVEN ON 15 AND 22 MAY 09
     Route: 042
     Dates: start: 20090515, end: 20090522
  4. ADRIACIN [Suspect]
     Route: 042
     Dates: start: 20090515, end: 20090515
  5. DEXAMETHASONE [Concomitant]
     Dosage: 12MAY09 - 15MAY09 22MAY09 - 25MAY09
     Route: 065
     Dates: start: 20090512
  6. OMEPRAL [Concomitant]
     Route: 048
     Dates: start: 20090512
  7. ITRIZOLE [Concomitant]
     Dosage: 12MAY09 - 21MAY09 23MAY09 TO ONGOING
     Route: 048
     Dates: start: 20090512
  8. DECADRON [Concomitant]
     Route: 048
  9. ALOSITOL [Concomitant]
     Route: 048
     Dates: start: 20090512, end: 20090521
  10. GENINAX [Concomitant]
     Dosage: 12MAY09 - 28MAY09 09JUN09 - 11JUN09
     Route: 048
     Dates: start: 20090512
  11. SULFAMETHOXAZOLE AND TRIMETHOPRIM [Concomitant]
     Dates: start: 20090512, end: 20090512
  12. POTASSIUM CHLORIDE [Concomitant]
     Dates: start: 20090516, end: 20090517
  13. MAGNESIUM OXIDE [Concomitant]
     Dates: start: 20090526
  14. METOCLOPRAMIDE HCL [Concomitant]
     Dosage: 13MAY09 - 13MAY09 26MAY09- ONGOING
     Dates: start: 20090513
  15. OXETHAZAINE [Concomitant]
     Dosage: 13MAY09 - 13MAY09 26MAY09 - 26MAY09
     Dates: start: 20090513, end: 20090526
  16. MAG OXIDE+DICYCLOMINE+ALUM HYDROX [Concomitant]
     Dates: start: 20090513, end: 20090513
  17. ALBUMIN TANNATE [Concomitant]
     Dates: start: 20090514, end: 20090514
  18. ACETAMINOPHEN [Concomitant]
     Dosage: GIVEN ON 20MAY09,29MAY,31MAY,2JUN09,5JUN09-11JUN09
     Dates: start: 20090520, end: 20090611
  19. SENNOSIDE A+B [Concomitant]
     Dates: start: 20090526, end: 20090526
  20. LIDOCAINE + TRIBENOSIDE [Concomitant]
     Dates: start: 20090513, end: 20090516
  21. SODIUM BICARBONATE [Concomitant]
     Dates: start: 20090512, end: 20090515
  22. GRANISETRON HCL [Concomitant]
     Dates: start: 20090512, end: 20090515
  23. FILGRASTIM [Concomitant]
     Dates: start: 20090526, end: 20090531
  24. DANAPAROID SODIUM [Concomitant]
     Dates: start: 20090515, end: 20090520
  25. FUROSEMIDE [Concomitant]
     Dosage: 15MAY09 - 15MAY09 17MAY09 - 17MAY09
     Dates: start: 20090515
  26. CYANOCOBALAMIN + THIAMINE [Concomitant]
     Dosage: 18MAY09 - 20MAY09 30MAY09 - 30MAY09
     Dates: start: 20090518, end: 20090530
  27. PYRIDOXINE HCL [Concomitant]
     Dosage: 18MAY09 - 20MAY09 30MAY09 - 30MAY09
     Dates: start: 20090518
  28. DEXCHLORPHENIRAMINE MALEATE [Concomitant]
     Dates: start: 20090516, end: 20090524
  29. SCOPOLAMINE BUTYLBROMIDE [Concomitant]
     Dosage: 13MAY09 - 13MAY09 27MAY09 - 27MAY09
     Dates: start: 20090513, end: 20090527
  30. PENTAZOCINE LACTATE [Concomitant]
     Dosage: 13MAY09 - 13MAY09 25MAY09 - 25MAY09
     Dates: start: 20090513, end: 20090525
  31. PROCHLORPERAZINE MESYLATE [Concomitant]
     Dates: start: 20090515, end: 20090515
  32. VALACYCLOVIR HCL [Concomitant]
     Dates: start: 20090602, end: 20090611
  33. MORPHINE HCL ELIXIR [Concomitant]
     Dates: start: 20090527, end: 20090527
  34. SODIUM GUALENATE [Concomitant]
     Dates: start: 20090528, end: 20090531
  35. LIDOCAINE [Concomitant]
     Dates: start: 20090528, end: 20090531
  36. MEROPENEM [Concomitant]
     Dates: start: 20090528, end: 20090608
  37. HYDROXYZINE HCL [Concomitant]
     Dates: start: 20090527, end: 20090527

REACTIONS (9)
  - ANAEMIA [None]
  - ATRIAL FIBRILLATION [None]
  - CARDIAC FAILURE [None]
  - CYSTITIS HAEMORRHAGIC [None]
  - HERPES ZOSTER [None]
  - NEUTROPHIL COUNT DECREASED [None]
  - PLATELET COUNT DECREASED [None]
  - PULMONARY OEDEMA [None]
  - WHITE BLOOD CELL COUNT DECREASED [None]
